FAERS Safety Report 4953893-3 (Version None)
Quarter: 2006Q1

REPORT INFORMATION
  Report Type: 
  Country: None (occurrence: None)
  Receive Date: 20060324
  Receipt Date: 20060324
  Transmission Date: 20060701
  Serious: Yes (Life-Threatening, Hospitalization)
  Sender: FDA-Public Use
  Company Number: None

PATIENT
  Age: 72 Year
  Sex: Female
  Weight: 58.9676 kg

DRUGS (1)
  1. TAMIFLU [Suspect]
     Dosage: ONE PILL 2 X A DAY PO
     Route: 048
     Dates: start: 20051024, end: 20051027

REACTIONS (17)
  - ASTHENIA [None]
  - BONE PAIN [None]
  - BUTTOCK PAIN [None]
  - CEREBROVASCULAR ACCIDENT [None]
  - CHEST PAIN [None]
  - CONDITION AGGRAVATED [None]
  - DIARRHOEA [None]
  - DRUG INEFFECTIVE [None]
  - FATIGUE [None]
  - FREQUENT BOWEL MOVEMENTS [None]
  - HYPERAESTHESIA [None]
  - LIVER DISORDER [None]
  - NAUSEA [None]
  - PAIN IN EXTREMITY [None]
  - SCREAMING [None]
  - SHOULDER PAIN [None]
  - SKIN BURNING SENSATION [None]
